FAERS Safety Report 5704475-7 (Version None)
Quarter: 2008Q2

REPORT INFORMATION
  Report Type: 
  Country: None (occurrence: None)
  Receive Date: 20080414
  Receipt Date: 20080408
  Transmission Date: 20081010
  Serious: Yes (Hospitalization)
  Sender: FDA-Public Use
  Company Number: US-MERCK-0804USA02066

PATIENT
  Age: 53 Year
  Sex: Male

DRUGS (3)
  1. HYZAAR [Suspect]
     Indication: HYPERTENSION
     Route: 048
     Dates: start: 20060101, end: 20080101
  2. ASPIRIN [Concomitant]
     Route: 065
  3. PROTONIX [Concomitant]
     Route: 065

REACTIONS (4)
  - BLOOD POTASSIUM INCREASED [None]
  - MUSCLE SPASMS [None]
  - MUSCULAR WEAKNESS [None]
  - YELLOW SKIN [None]
